FAERS Safety Report 8283082-9 (Version None)
Quarter: 2012Q2

REPORT INFORMATION
  Report Type: 
  Country: None (occurrence: None)
  Receive Date: 20120413
  Receipt Date: 20120409
  Transmission Date: 20120825
  Serious: No
  Sender: FDA-Public Use
  Company Number: US-PFIZER INC-2012088705

PATIENT
  Sex: Male
  Weight: 80.272 kg

DRUGS (2)
  1. CAVERJECT [Suspect]
     Indication: ERECTILE DYSFUNCTION
     Dosage: 40 UG, AS NEEDED
     Route: 017
     Dates: start: 20090101
  2. VIAGRA [Suspect]
     Indication: ERECTILE DYSFUNCTION
     Dosage: 100 MG, AS NEEDED
     Route: 048
     Dates: start: 20090101

REACTIONS (3)
  - BLOOD TESTOSTERONE DECREASED [None]
  - ASTHENIA [None]
  - SLUGGISHNESS [None]
